FAERS Safety Report 25182338 (Version 2)
Quarter: 2025Q2

REPORT INFORMATION
  Report Type: Spontaneous
  Country: US (occurrence: US)
  Receive Date: 20250410
  Receipt Date: 20250505
  Transmission Date: 20250717
  Serious: No
  Sender: APOTEX
  Company Number: US-APOTEX-2025AP003661

PATIENT
  Sex: Male

DRUGS (2)
  1. BRIMONIDINE TARTRATE [Suspect]
     Active Substance: BRIMONIDINE TARTRATE
     Indication: Product used for unknown indication
     Dosage: 2 GTT DROPS, QD
     Route: 047
  2. BRIMONIDINE TARTRATE [Suspect]
     Active Substance: BRIMONIDINE TARTRATE
     Dosage: 2 GTT DROPS, QD
     Route: 047

REACTIONS (4)
  - Product dose omission issue [Unknown]
  - Device difficult to use [Unknown]
  - Product use issue [Unknown]
  - No adverse event [Unknown]
